FAERS Safety Report 21252686 (Version 2)
Quarter: 2022Q3

REPORT INFORMATION
  Report Type: Other
  Country: CA (occurrence: None)
  Receive Date: 20220825
  Receipt Date: 20220920
  Transmission Date: 20221027
  Serious: Yes (Other)
  Sender: FDA-Public Use
  Company Number: CA-ROCHE-3163470

PATIENT
  Age: 79 Year
  Sex: Female

DRUGS (1)
  1. VABYSMO [Suspect]
     Active Substance: FARICIMAB-SVOA
     Indication: Diabetic retinal oedema
     Dosage: YES
     Route: 050
     Dates: start: 20220811

REACTIONS (4)
  - Cataract [Unknown]
  - Discomfort [Unknown]
  - Pain [Unknown]
  - Dry eye [Unknown]

NARRATIVE: CASE EVENT DATE: 20220811
